FAERS Safety Report 14582536 (Version 3)
Quarter: 2018Q2

REPORT INFORMATION
  Report Type: Spontaneous
  Country: US (occurrence: US)
  Receive Date: 20180228
  Receipt Date: 20180411
  Transmission Date: 20180711
  Serious: No
  Sender: FDA-Public Use
  Company Number: US-009507513-1802USA009420

PATIENT
  Sex: Female
  Weight: 87.98 kg

DRUGS (1)
  1. NEXPLANON [Suspect]
     Active Substance: ETONOGESTREL
     Indication: CONTRACEPTION
     Dosage: ONE ROD EVERY THREE YEARS, LEFT ARM
     Route: 059
     Dates: start: 20160310, end: 20180201

REACTIONS (3)
  - Device breakage [Recovered/Resolved]
  - Candida infection [Unknown]
  - Menstruation irregular [Recovered/Resolved]
